FAERS Safety Report 23636226 (Version 1)
Quarter: 2024Q1

REPORT INFORMATION
  Report Type: Spontaneous
  Country: AT (occurrence: AT)
  Receive Date: 20240315
  Receipt Date: 20240315
  Transmission Date: 20240410
  Serious: Yes (Hospitalization, Other)
  Sender: FDA-Public Use
  Company Number: AT-GRANULES-AT-2024GRALIT00062

PATIENT
  Age: 35 Year
  Sex: Female
  Weight: 80 kg

DRUGS (3)
  1. SERTRALINE HYDROCHLORIDE [Suspect]
     Active Substance: SERTRALINE HYDROCHLORIDE
     Indication: Depression
     Route: 065
  2. DIMENHYDRINATE [Suspect]
     Active Substance: DIMENHYDRINATE
     Indication: Vertigo
     Route: 065
  3. DIMENHYDRINATE [Suspect]
     Active Substance: DIMENHYDRINATE
     Dosage: SECOND INFUSION
     Route: 065

REACTIONS (1)
  - Urinary retention [Recovered/Resolved]
